FAERS Safety Report 12470246 (Version 1)
Quarter: 2016Q2

REPORT INFORMATION
  Report Type: Spontaneous
  Country: JP (occurrence: JP)
  Receive Date: 20160616
  Receipt Date: 20160616
  Transmission Date: 20160815
  Serious: Yes (Hospitalization)
  Sender: FDA-Public Use
  Company Number: JP-ROCHE-1776967

PATIENT
  Age: 44 Year
  Sex: Male

DRUGS (1)
  1. PEGASYS [Suspect]
     Active Substance: PEGINTERFERON ALFA-2A
     Indication: HEPATITIS B
     Dosage: DOSAGE IS UNCERTAIN.
     Route: 058
     Dates: start: 201509

REACTIONS (2)
  - Appendicitis [Unknown]
  - Dizziness [Unknown]

NARRATIVE: CASE EVENT DATE: 2016
